FAERS Safety Report 6558809-4 (Version None)
Quarter: 2010Q1

REPORT INFORMATION
  Report Type: 
  Country: None (occurrence: None)
  Receive Date: 20100129
  Receipt Date: 20100118
  Transmission Date: 20100710
  Serious: Yes (Hospitalization)
  Sender: FDA-Public Use
  Company Number: PHHY2010CN03225

PATIENT
  Age: 66 Year
  Sex: Female

DRUGS (2)
  1. MIACALCIN [Suspect]
     Indication: HYPERPARATHYROIDISM
     Dosage: 50 U, QD
     Route: 030
  2. AMINO ACIDS [Concomitant]
     Indication: OSTEOPOROSIS
     Dosage: ONE PILL DAILY
     Route: 048

REACTIONS (7)
  - ARTHRALGIA [None]
  - BONE LESION [None]
  - BONE PAIN [None]
  - DYSSTASIA [None]
  - GAIT DISTURBANCE [None]
  - MULTIPLE MYELOMA [None]
  - OSTEOPOROSIS [None]
